FAERS Safety Report 20822947 (Version 2)
Quarter: 2022Q4

REPORT INFORMATION
  Report Type: Spontaneous
  Country: IT (occurrence: IT)
  Receive Date: 20220512
  Receipt Date: 20221123
  Transmission Date: 20230112
  Serious: Yes (Death, Life-Threatening, Other)
  Sender: FDA-Public Use
  Company Number: IT-CELGENE-ITA-20210808364

PATIENT
  Age: 77 Year
  Sex: Male

DRUGS (33)
  1. AZACITIDINE [Suspect]
     Active Substance: AZACITIDINE
     Indication: Acute myeloid leukaemia
     Dosage: FREQUENCY TEXT: NOT PROVIDED
     Route: 042
     Dates: start: 20210628
  2. AZACITIDINE [Suspect]
     Active Substance: AZACITIDINE
     Route: 058
  3. AZACITIDINE [Suspect]
     Active Substance: AZACITIDINE
     Route: 058
     Dates: start: 20210727
  4. VENETOCLAX [Suspect]
     Active Substance: VENETOCLAX
     Indication: Acute myeloid leukaemia
     Dosage: WITHHELD
     Route: 042
  5. VENETOCLAX [Suspect]
     Active Substance: VENETOCLAX
     Dosage: FREQUENCY TEXT: NOT PROVIDED
     Route: 048
     Dates: start: 20210628
  6. VENETOCLAX [Suspect]
     Active Substance: VENETOCLAX
     Route: 048
     Dates: start: 20210629
  7. VENETOCLAX [Suspect]
     Active Substance: VENETOCLAX
     Route: 048
     Dates: start: 20210630
  8. VENETOCLAX [Suspect]
     Active Substance: VENETOCLAX
     Route: 048
     Dates: start: 20210701
  9. VENETOCLAX [Suspect]
     Active Substance: VENETOCLAX
     Route: 048
  10. PEVONEDISTAT [Suspect]
     Active Substance: PEVONEDISTAT
     Indication: Acute myeloid leukaemia
     Route: 042
     Dates: start: 20210628
  11. FOSFOMYCIN [Concomitant]
     Active Substance: FOSFOMYCIN
  12. FOSFOMYCIN [Concomitant]
     Active Substance: FOSFOMYCIN
     Indication: Febrile neutropenia
     Dates: start: 20210719, end: 20210728
  13. CALCIUM GLUCONATE [Concomitant]
     Active Substance: CALCIUM GLUCONATE
  14. CALCIUM GLUCONATE [Concomitant]
     Active Substance: CALCIUM GLUCONATE
     Indication: Mineral supplementation
     Dates: start: 20210724, end: 20210806
  15. BISOPROLOL FUMARATE\HYDROCHLOROTHIAZIDE [Concomitant]
     Active Substance: BISOPROLOL FUMARATE\HYDROCHLOROTHIAZIDE
  16. BISOPROLOL FUMARATE\HYDROCHLOROTHIAZIDE [Concomitant]
     Active Substance: BISOPROLOL FUMARATE\HYDROCHLOROTHIAZIDE
     Indication: Chronic obstructive pulmonary disease
     Dates: start: 20210630, end: 20210819
  17. LUAN [Concomitant]
  18. LUAN [Concomitant]
     Indication: Haemorrhoids
     Dates: start: 20210725, end: 20210725
  19. CEFTRIAXONE SODIUM [Concomitant]
     Active Substance: CEFTRIAXONE SODIUM
  20. CEFTRIAXONE SODIUM [Concomitant]
     Active Substance: CEFTRIAXONE SODIUM
     Indication: Bacterial infection
     Dates: start: 20210719, end: 20210805
  21. CEFTRIAXONE SODIUM [Concomitant]
     Active Substance: CEFTRIAXONE SODIUM
     Dosage: FREQUENCY TEXT: NOT PROVIDED
     Route: 065
     Dates: start: 20210719, end: 20210805
  22. NADROPARIN CALCIUM [Concomitant]
     Active Substance: NADROPARIN CALCIUM
  23. NADROPARIN CALCIUM [Concomitant]
     Active Substance: NADROPARIN CALCIUM
     Indication: Thrombosis prophylaxis
     Dates: start: 20210719, end: 20210819
  24. COCODAMOL [Concomitant]
     Active Substance: ACETAMINOPHEN\CODEINE PHOSPHATE
  25. COCODAMOL [Concomitant]
     Active Substance: ACETAMINOPHEN\CODEINE PHOSPHATE
     Indication: Product used for unknown indication
     Dates: start: 20210719, end: 20210820
  26. COCODAMOL [Concomitant]
     Active Substance: ACETAMINOPHEN\CODEINE PHOSPHATE
     Dosage: FREQUENCY TEXT: NOT PROVIDED
     Route: 065
     Dates: start: 20210719, end: 20210820
  27. POSACONAZOLE [Concomitant]
     Active Substance: POSACONAZOLE
  28. POSACONAZOLE [Concomitant]
     Active Substance: POSACONAZOLE
     Indication: Product used for unknown indication
     Dates: start: 20210719, end: 20210806
  29. METHYLPREDNISOLONE [Concomitant]
     Active Substance: METHYLPREDNISOLONE
     Indication: Inflammation
     Dosage: FREQUENCY TEXT: NOT PROVIDED
     Route: 065
     Dates: start: 20210731, end: 20210805
  30. METHYLPREDNISOLONE [Concomitant]
     Active Substance: METHYLPREDNISOLONE
     Indication: Pain
  31. METHYLPREDNISOLONE [Concomitant]
     Active Substance: METHYLPREDNISOLONE
     Indication: Febrile neutropenia
  32. OMEPRAZOLE [Concomitant]
     Active Substance: OMEPRAZOLE
     Indication: Prophylaxis
     Dosage: FREQUENCY TEXT: NOT PROVIDED
     Route: 065
     Dates: start: 20210604, end: 20210810
  33. CODEINE PHOSPHATE [Concomitant]
     Active Substance: CODEINE PHOSPHATE
     Indication: Product used for unknown indication
     Dosage: FREQUENCY TEXT: NOT PROVIDED
     Route: 065

REACTIONS (1)
  - Acute myeloid leukaemia [Fatal]

NARRATIVE: CASE EVENT DATE: 20210810
